FAERS Safety Report 12546729 (Version 1)
Quarter: 2016Q3

REPORT INFORMATION
  Report Type: Report from Study
  Country: CA (occurrence: CA)
  Receive Date: 20160711
  Receipt Date: 20160711
  Transmission Date: 20161109
  Serious: Yes (Other)
  Sender: FDA-Public Use
  Company Number: CA-JNJFOC-20160704390

PATIENT
  Age: 47 Year
  Sex: Female

DRUGS (8)
  1. T3 [Concomitant]
     Active Substance: LIOTHYRONINE SODIUM
     Indication: SURGERY
     Route: 065
  2. VITAMIN D [Concomitant]
     Active Substance: CHOLECALCIFEROL
     Route: 065
  3. METHOTREXATE. [Concomitant]
     Active Substance: METHOTREXATE
     Route: 065
  4. METRONIDAZOLE. [Concomitant]
     Active Substance: METRONIDAZOLE
     Indication: SURGERY
     Route: 065
  5. RAMIPRIL. [Concomitant]
     Active Substance: RAMIPRIL
     Route: 065
  6. AMLODIPINE [Concomitant]
     Active Substance: AMLODIPINE BESYLATE
     Route: 065
  7. PLAQUENIL [Concomitant]
     Active Substance: HYDROXYCHLOROQUINE SULFATE
     Route: 065
  8. SIMPONI [Suspect]
     Active Substance: GOLIMUMAB
     Indication: PSORIATIC ARTHROPATHY
     Route: 058
     Dates: start: 20150917

REACTIONS (3)
  - Off label use [Unknown]
  - Product use issue [Unknown]
  - Precancerous cells present [Unknown]

NARRATIVE: CASE EVENT DATE: 20150917
